FAERS Safety Report 8884973 (Version 1)
Quarter: 2012Q4

REPORT INFORMATION
  Report Type: 
  Country: US (occurrence: US)
  Receive Date: 20121102
  Receipt Date: 20121102
  Transmission Date: 20130627
  Serious: No
  Sender: FDA-Public Use
  Company Number: US-VERTEX PHARMACEUTICAL INC.-2012-023805

PATIENT
  Age: 55 Year
  Sex: Female
  Weight: 48 kg

DRUGS (8)
  1. VX-950 [Suspect]
     Indication: HEPATITIS C
     Dosage: 750 mg, UNK
     Route: 048
  2. PEGASYS [Concomitant]
     Indication: HEPATITIS C
  3. RIBAVIRIN [Concomitant]
     Indication: HEPATITIS C
     Dosage: 200 mg, UNK
  4. GABAPENTIN [Concomitant]
     Dosage: 100 mg, UNK
  5. EVOXAC [Concomitant]
     Dosage: 30 mg, UNK
  6. EVISTA [Concomitant]
     Dosage: 60 mg, UNK
  7. CALCIUM [Concomitant]
     Dosage: 500 UNK, UNK
  8. D3 CAP [Concomitant]

REACTIONS (4)
  - Pain in extremity [Unknown]
  - Fatigue [Unknown]
  - Rash [Unknown]
  - Vomiting [Unknown]
